FAERS Safety Report 4522507-9 (Version None)
Quarter: 2004Q4

REPORT INFORMATION
  Report Type: 
  Country: None (occurrence: None)
  Receive Date: 20041207
  Receipt Date: 20041119
  Transmission Date: 20050328
  Serious: Yes (Life-Threatening)
  Sender: FDA-Public Use
  Company Number: JP_041105120

PATIENT
  Age: 55 Year
  Sex: Female

DRUGS (4)
  1. EVISTA [Suspect]
     Indication: OSTEOPOROSIS POSTMENOPAUSAL
     Dosage: 60 MG/1 DAY
     Dates: start: 20040823, end: 20040913
  2. GRANDAXIN (TOFISOPAM) [Concomitant]
  3. RESMIT (MEDAZEPAM) [Concomitant]
  4. DILTIAZEM HYDROCHLORIDE [Concomitant]

REACTIONS (2)
  - CHEST PAIN [None]
  - DRUG EFFECT DECREASED [None]
